FAERS Safety Report 7917125-6 (Version None)
Quarter: 2011Q4

REPORT INFORMATION
  Report Type: 
  Country: None (occurrence: None)
  Receive Date: 20111114
  Receipt Date: 20111027
  Transmission Date: 20120403
  Serious: Yes (Hospitalization)
  Sender: FDA-Public Use
  Company Number: MYCO20110013

PATIENT
  Age: 56 Year
  Sex: Female

DRUGS (4)
  1. PREDNISOLONE [Concomitant]
  2. MYCOPHENOLATE MOFETIL [Suspect]
     Indication: IMMUNOSUPPRESSION
     Dosage: 1 GM, 1 IN 1 D, ORAL
     Route: 048
     Dates: start: 19980601, end: 19991001
  3. AZATHIOPRINE (AZATHIOPRINE) (AZATHIOPRINE) [Concomitant]
  4. CYCLOSPORINE [Concomitant]

REACTIONS (4)
  - ATELECTASIS [None]
  - PNEUMONIA [None]
  - UROSEPSIS [None]
  - BRONCHIECTASIS [None]
